FAERS Safety Report 5900360-6 (Version None)
Quarter: 2008Q3

REPORT INFORMATION
  Report Type: 
  Country: None (occurrence: None)
  Receive Date: 20080926
  Receipt Date: 20080914
  Transmission Date: 20090109
  Serious: Yes (Other)
  Sender: FDA-Public Use
  Company Number: US-PFIZER INC-2008078272

PATIENT
  Sex: Male
  Weight: 80.3 kg

DRUGS (10)
  1. CHANTIX [Suspect]
     Indication: SMOKING CESSATION THERAPY
     Route: 048
     Dates: start: 20080901
  2. ALL OTHER THERAPEUTIC PRODUCTS [Concomitant]
     Indication: NEPHROLITHIASIS
     Dosage: TEXT:THREE TIMES A DAY
  3. SEROQUEL [Concomitant]
     Indication: DEPRESSION
     Dosage: DAILY DOSE:1000MG-FREQ:DAILY
  4. IMIPRAMINE [Concomitant]
  5. KLONOPIN [Concomitant]
  6. PREVACID [Concomitant]
  7. WELLBUTRIN XL [Concomitant]
  8. GEMFIBROZIL [Concomitant]
  9. ZOCOR [Concomitant]
     Dosage: TEXT:DAILY
  10. NEURONTIN [Concomitant]

REACTIONS (4)
  - ACTIVITIES OF DAILY LIVING IMPAIRED [None]
  - ANXIETY [None]
  - CHEST PAIN [None]
  - DEPRESSION [None]
